FAERS Safety Report 24204293 (Version 1)
Quarter: 2024Q3

REPORT INFORMATION
  Report Type: Spontaneous
  Country: US (occurrence: US)
  Receive Date: 20240813
  Receipt Date: 20240813
  Transmission Date: 20241016
  Serious: Yes (Other)
  Sender: ELI LILLY AND CO
  Company Number: US-ELI_LILLY_AND_COMPANY-US202408001030

PATIENT
  Age: 64 Year

DRUGS (1)
  1. TRULICITY [Suspect]
     Active Substance: DULAGLUTIDE
     Indication: Product used for unknown indication
     Dosage: UNK UNK, UNKNOWN
     Route: 065
     Dates: start: 202202, end: 202207

REACTIONS (4)
  - Impaired gastric emptying [Unknown]
  - Vomiting [Unknown]
  - Nausea [Unknown]
  - Abdominal pain upper [Unknown]
